FAERS Safety Report 17756641 (Version 1)
Quarter: 2020Q2

REPORT INFORMATION
  Report Type: Spontaneous
  Country: FR (occurrence: FR)
  Receive Date: 20200507
  Receipt Date: 20200507
  Transmission Date: 20200714
  Serious: Yes (Hospitalization)
  Sender: FDA-Public Use
  Company Number: FR-MYLANLABS-2020M1045335

PATIENT
  Age: 53 Year
  Sex: Male

DRUGS (4)
  1. MAGNESIUM SULPHATE                 /01097001/ [Concomitant]
     Active Substance: MAGNESIUM SULFATE
     Dosage: UNK
     Dates: start: 20200326, end: 20200328
  2. CHLOROQUINE. [Suspect]
     Active Substance: CHLOROQUINE
     Indication: CORONAVIRUS INFECTION
     Dosage: UNK
     Route: 048
     Dates: end: 20200324
  3. CEFOTAXIME [Concomitant]
     Active Substance: CEFOTAXIME SODIUM
     Indication: CORONAVIRUS INFECTION
     Dosage: 2 GRAM
     Route: 065
     Dates: start: 20200326, end: 20200328
  4. ZECLAR [Suspect]
     Active Substance: CLARITHROMYCIN
     Indication: CORONAVIRUS INFECTION
     Dosage: 1 GRAM, QD
     Route: 065
     Dates: start: 20200326, end: 20200328

REACTIONS (2)
  - Circulatory collapse [Recovering/Resolving]
  - Tachyarrhythmia [Recovering/Resolving]

NARRATIVE: CASE EVENT DATE: 20200328
